FAERS Safety Report 8993097 (Version 4)
Quarter: 2013Q1

REPORT INFORMATION
  Report Type: Spontaneous
  Country: US (occurrence: US)
  Receive Date: 20130102
  Receipt Date: 20130225
  Transmission Date: 20140127
  Serious: Yes (Other)
  Sender: FDA-Public Use
  Company Number: US-PFIZER INC-2013000071

PATIENT
  Age: 72 Year
  Sex: Female
  Weight: 78.9 kg

DRUGS (15)
  1. ARICEPT [Suspect]
     Indication: DEMENTIA
     Dosage: 10 MG, 1X/DAY
  2. LYRICA [Suspect]
     Indication: NEUROPATHY PERIPHERAL
     Dosage: 200 MG, 2X/DAY
     Route: 048
  3. LYRICA [Suspect]
     Indication: NEUROPATHY PERIPHERAL
     Dosage: 200 MG, 1X/DAY
  4. LEXAPRO [Concomitant]
     Dosage: 20 MG, 1X/DAY
  5. FERROUS SULPHATE [Concomitant]
     Dosage: 325 MG, 2X/DAY
  6. FOLIC ACID [Concomitant]
     Dosage: 1 MG, 1X/DAY
  7. LASIX [Concomitant]
     Dosage: 20 MG, 3X/DAY
  8. LISINOPRIL [Concomitant]
     Dosage: 40 MG, 1X/DAY
  9. LUNESTA [Concomitant]
     Dosage: 3 MG, 1X/DAY
  10. LORAZEPAM [Concomitant]
     Dosage: 1 MG, AS NEEDED
  11. METOPROLOL [Concomitant]
     Dosage: 50 MG, 4X/DAY
  12. NABUMETONE [Concomitant]
     Dosage: 500 MG, 2X/DAY
  13. PRAVASTATIN [Concomitant]
     Dosage: 40 MG, 2X/DAY
  14. WARFARIN [Concomitant]
     Dosage: 2.5 MG, AS NEEDED
  15. PROAIR HFA [Concomitant]
     Dosage: UNK, 2X/DAY

REACTIONS (1)
  - Dementia [Not Recovered/Not Resolved]
